FAERS Safety Report 11206106 (Version 2)
Quarter: 2015Q3

REPORT INFORMATION
  Report Type: Report from Study
  Country: US (occurrence: US)
  Receive Date: 20150622
  Receipt Date: 20150703
  Transmission Date: 20151125
  Serious: Yes (Hospitalization)
  Sender: FDA-Public Use
  Company Number: US-JNJFOC-20150606947

PATIENT
  Age: 76 Year
  Sex: Female
  Weight: 61 kg

DRUGS (12)
  1. IMBRUVICA [Suspect]
     Active Substance: IBRUTINIB
     Indication: LYMPHOMA
     Dates: start: 20140220, end: 2015
  2. KLORCON [Concomitant]
  3. IMBRUVICA [Suspect]
     Active Substance: IBRUTINIB
     Indication: HODGKIN^S DISEASE
     Dates: start: 20140228, end: 2015
  4. CALCIUM WITH VITAMIN D [Concomitant]
     Active Substance: CALCIUM\VITAMIN D
  5. MULTIVITAMINS [Concomitant]
     Active Substance: VITAMINS
  6. DIPHENHYDRAMINE HYDROCHLORIDE. [Concomitant]
     Active Substance: DIPHENHYDRAMINE HYDROCHLORIDE
  7. IMBRUVICA [Suspect]
     Active Substance: IBRUTINIB
     Indication: HODGKIN^S DISEASE
     Dates: start: 20140220, end: 2015
  8. IMBRUVICA [Suspect]
     Active Substance: IBRUTINIB
     Indication: MANTLE CELL LYMPHOMA
     Dates: start: 20140228, end: 2015
  9. IMBRUVICA [Suspect]
     Active Substance: IBRUTINIB
     Indication: LYMPHOMA
     Dates: start: 20140228, end: 2015
  10. IMBRUVICA [Suspect]
     Active Substance: IBRUTINIB
     Indication: MANTLE CELL LYMPHOMA
     Dates: start: 20140220, end: 2015
  11. LISINOPRIL. [Concomitant]
     Active Substance: LISINOPRIL
  12. PRAVASTATIN SODIUM. [Concomitant]
     Active Substance: PRAVASTATIN SODIUM

REACTIONS (9)
  - Asthenia [Recovering/Resolving]
  - Hypotension [Recovered/Resolved]
  - Intestinal mass [Not Recovered/Not Resolved]
  - Cough [Recovering/Resolving]
  - Clostridium difficile colitis [Recovering/Resolving]
  - Oral candidiasis [Recovering/Resolving]
  - Acute kidney injury [Recovering/Resolving]
  - Diastolic dysfunction [Recovering/Resolving]
  - Atrial fibrillation [Recovered/Resolved]

NARRATIVE: CASE EVENT DATE: 2015
